FAERS Safety Report 13899913 (Version 1)
Quarter: 2017Q3

REPORT INFORMATION
  Report Type: Spontaneous
  Country: US (occurrence: US)
  Receive Date: 20170824
  Receipt Date: 20170824
  Transmission Date: 20171127
  Serious: Yes (Other)
  Sender: FDA-Public Use
  Company Number: US-NOVOPROD-558772

PATIENT
  Age: 59 Year
  Sex: Female
  Weight: 82 kg

DRUGS (10)
  1. NOVOLIN R [Suspect]
     Active Substance: INSULIN HUMAN
     Dosage: 1.1 UNITS/KG/HOUR
     Route: 042
  2. CALCIUM CHLORIDE. [Concomitant]
     Active Substance: CALCIUM CHLORIDE
     Dosage: 2000MG (BOLUS)
     Route: 042
  3. NOREPINEPHRINE. [Concomitant]
     Active Substance: NOREPINEPHRINE
     Dosage: 4 MCG/MIN
  4. NOREPINEPHRINE. [Concomitant]
     Active Substance: NOREPINEPHRINE
     Dosage: 40 MCG/MIN
  5. NOVOLIN R [Suspect]
     Active Substance: INSULIN HUMAN
     Indication: TOXICITY TO VARIOUS AGENTS
     Dosage: 0.1 UNITS/KG/HOUR
     Route: 042
  6. NOREPINEPHRINE. [Concomitant]
     Active Substance: NOREPINEPHRINE
     Dosage: UNK
  7. CALCIUM GLUCONATE. [Concomitant]
     Active Substance: CALCIUM GLUCONATE
     Dosage: UNK
  8. GLUCAGON. [Concomitant]
     Active Substance: GLUCAGON
     Dosage: 3 MG/HOUR (INFUSION)
     Route: 042
  9. SODIUM BICARBONATE. [Concomitant]
     Active Substance: SODIUM BICARBONATE
     Dosage: 150 MEQ (INFUSION)
     Route: 042
  10. GLUCAGON. [Concomitant]
     Active Substance: GLUCAGON
     Dosage: 10 MG (BOLUS)
     Route: 042

REACTIONS (2)
  - Hyponatraemia [Recovered/Resolved]
  - Hypoglycaemia [Unknown]
